FAERS Safety Report 6788791-6 (Version None)
Quarter: 2010Q2

REPORT INFORMATION
  Report Type: 
  Country: None (occurrence: None)
  Receive Date: 20100623
  Receipt Date: 20080611
  Transmission Date: 20101027
  Serious: No
  Sender: FDA-Public Use
  Company Number: US-PFIZER INC-2008031767

PATIENT
  Sex: Female
  Weight: 70.454 kg

DRUGS (5)
  1. CADUET [Suspect]
     Indication: HYPERTENSION
     Dosage: 5/20MG
     Route: 048
     Dates: start: 20080405
  2. NITROFURANTOIN [Concomitant]
     Indication: KIDNEY INFECTION
  3. ASPIRIN [Concomitant]
     Indication: SCIATICA
  4. XANAX [Concomitant]
     Indication: STRESS
  5. VITAMINS [Concomitant]

REACTIONS (4)
  - CONFUSIONAL STATE [None]
  - INSOMNIA [None]
  - SOMNOLENCE [None]
  - VISUAL IMPAIRMENT [None]
